FAERS Safety Report 4591581-6 (Version None)
Quarter: 2005Q1

REPORT INFORMATION
  Report Type: 
  Country: None (occurrence: None)
  Receive Date: 20050223
  Receipt Date: 20050223
  Transmission Date: 20050727
  Serious: Yes (Hospitalization)
  Sender: FDA-Public Use
  Company Number: None

PATIENT
  Age: 54 Year
  Sex: Male
  Weight: 104.3273 kg

DRUGS (1)
  1. DULOXETINE   60 MG    LILLY [Suspect]
     Indication: DEPRESSION
     Dosage: 60 MG   DAILY   ORAL
     Route: 048
     Dates: start: 20041110, end: 20050222

REACTIONS (1)
  - ACUTE MYOCARDIAL INFARCTION [None]
